FAERS Safety Report 18868246 (Version 1)
Quarter: 2021Q1

REPORT INFORMATION
  Report Type: Report from Study
  Country: EG (occurrence: EG)
  Receive Date: 20210209
  Receipt Date: 20210209
  Transmission Date: 20210420
  Serious: Yes (Life-Threatening, Hospitalization, Other)
  Sender: FDA-Public Use
  Company Number: NVSC2021EG025960

PATIENT
  Age: 40 Year
  Sex: Female

DRUGS (1)
  1. GLIVEC [Suspect]
     Active Substance: IMATINIB MESYLATE
     Indication: CHRONIC MYELOID LEUKAEMIA
     Dosage: UNK
     Route: 065

REACTIONS (6)
  - Haemorrhage [Recovered/Resolved]
  - Splenomegaly [Recovering/Resolving]
  - Stillbirth [Unknown]
  - Anaemia [Recovered/Resolved]
  - Maternal exposure during pregnancy [Unknown]
  - Abortion [Unknown]
